FAERS Safety Report 5907725-7 (Version None)
Quarter: 2008Q4

REPORT INFORMATION
  Report Type: 
  Country: None (occurrence: None)
  Receive Date: 20081003
  Receipt Date: 20080930
  Transmission Date: 20090506
  Serious: Yes (Hospitalization)
  Sender: FDA-Public Use
  Company Number: DK-BRISTOL-MYERS SQUIBB COMPANY-14112023

PATIENT
  Age: 23 Year
  Sex: Female

DRUGS (13)
  1. CETUXIMAB [Suspect]
     Indication: GLIOBLASTOMA MULTIFORME
     Dosage: 740 MG, 1 IN 1 ONCE, IV 07DEC07 - 07DEC07.
     Route: 042
     Dates: start: 20071214, end: 20080125
  2. AVASTIN [Suspect]
     Indication: GLIOBLASTOMA MULTIFORME
     Dosage: FIRST INFUSION: 07-DEC-2007 MOST RECENT INFUSION: 18-JAN-2008
     Route: 042
     Dates: start: 20071207, end: 20080118
  3. IRINOTECAN HCL [Suspect]
     Indication: GLIOBLASTOMA MULTIFORME
     Dosage: FIRST INFUSION: 07-DEC-2007 MOST RECENT INFUSION: 18-JAN-2008
     Route: 042
     Dates: start: 20071207, end: 20080118
  4. PREDNISOLONE [Concomitant]
     Dosage: 30OCT07-20DEC07,50MG. 21DEC07-24JAN08,75MG. 25JAN-,62.5MG
     Dates: start: 20071030
  5. ACYCLOVIR [Concomitant]
     Indication: HERPES VIRUS INFECTION
     Dosage: 5*200 MG TABS + 50 MG CREAM ON 30-DEC-2007.
     Dates: start: 20071230
  6. MANDOLGIN [Concomitant]
     Indication: ARTHRALGIA
     Dates: start: 20080118, end: 20080118
  7. DIFLUCAN [Concomitant]
     Indication: FUNGAL INFECTION
     Dates: start: 20080101
  8. PANTOPRAZOLE SODIUM [Concomitant]
     Indication: GASTRIC ULCER
     Dates: start: 20071221
  9. ATROPINE [Concomitant]
     Indication: PREMEDICATION
     Dosage: DATES - FOR EACH IRINOTECAN TREATMENT.
     Route: 058
     Dates: start: 20071207
  10. TAVEGYL [Concomitant]
     Indication: PREMEDICATION
     Dosage: DATES + DURATION - BEFORE EACH CETUXIMAB TREATMENT
     Route: 042
  11. ONDANSETRON [Concomitant]
     Indication: PROPHYLAXIS OF NAUSEA AND VOMITING
     Route: 048
  12. DOXYCYCLINE [Concomitant]
     Indication: ACNE
     Dates: start: 20080118
  13. ACYCLOVIR [Concomitant]
     Indication: HERPES VIRUS INFECTION

REACTIONS (4)
  - ALVEOLITIS ALLERGIC [None]
  - ARTHRALGIA [None]
  - DYSPHAGIA [None]
  - INTENTION TREMOR [None]
